FAERS Safety Report 13001177 (Version 1)
Quarter: 2016Q4

REPORT INFORMATION
  Report Type: Spontaneous
  Country: NL (occurrence: NL)
  Receive Date: 20161206
  Receipt Date: 20161206
  Transmission Date: 20170207
  Serious: Yes (Other)
  Sender: FDA-Public Use
  Company Number: NL-CLINIGEN GROUP PLC/ CLINIGEN HEALTHCARE LTD-E2B_00001791

PATIENT
  Age: 12 Year
  Sex: Female
  Weight: 36 kg

DRUGS (5)
  1. IFOSFAMIDE. [Concomitant]
     Active Substance: IFOSFAMIDE
     Dosage: 3000MG/M2 2 MONTH(S)
     Route: 042
     Dates: start: 19960912, end: 19961028
  2. ETHYOL [Suspect]
     Active Substance: AMIFOSTINE
     Indication: ADVERSE DRUG REACTION
     Dosage: 740 MG/M2 BID 1 MONTH(S)
     Route: 042
     Dates: start: 19960912, end: 19961025
  3. VINCRISTINE [Concomitant]
     Active Substance: VINCRISTINE
     Dosage: 1.5 MG/M2 QD 1 MONTH(S)
     Route: 065
     Dates: start: 19960912, end: 19961025
  4. ACTINOMYCIN D [Concomitant]
     Active Substance: DACTINOMYCIN
     Dosage: 1500 MG/M2 QD 1 MONTH(S)
     Route: 065
     Dates: start: 19960912, end: 19961025
  5. MESNA. [Concomitant]
     Active Substance: MESNA
     Dosage: 3000 MG/M2 QD 2 MONTH(S)
     Route: 065
     Dates: start: 19960912, end: 19961029

REACTIONS (1)
  - Renal tubular disorder [Unknown]

NARRATIVE: CASE EVENT DATE: 19961007
